FAERS Safety Report 4658097-X (Version None)
Quarter: 2005Q2

REPORT INFORMATION
  Report Type: 
  Country: None (occurrence: None)
  Receive Date: 20050509
  Receipt Date: 20050503
  Transmission Date: 20051028
  Serious: Yes (Death, Life-Threatening)
  Sender: FDA-Public Use
  Company Number: TIF2004A00041

PATIENT
  Age: 42 Year
  Sex: Female

DRUGS (11)
  1. LANSOX                  (LANSOPRAZOLE) [Suspect]
     Indication: GASTRIC ULCER HAEMORRHAGE
     Dosage: 30 MG (15 MG, 2 G, 1 IN 1 D), ORAL
     Route: 048
     Dates: start: 20041119, end: 20041121
  2. CARNITENE                      (CARNITINE HYDROCHLORIDE) [Suspect]
     Indication: ANAEMIA
     Dosage: 2 G (2 G, 1 IN 1 D), INTRAVENOUS
     Route: 042
     Dates: start: 20041119, end: 20041119
  3. CALCIJEX [Concomitant]
     Dosage: INJECTION
     Route: 042
  4. EUTIROX (LEVOTHYROXINE) (TABLETS) [Concomitant]
  5. MAALOX (MAALOX) (SUSPENSION) [Concomitant]
  6. NEBILOX (NEBIVOLOL HYDROCHLORIDE) (TABLETS) [Concomitant]
  7. EPREX [Concomitant]
  8. RENAGEL (SEVELAMER HYDROCHLORIDE) (TABLETS) [Concomitant]
  9. SUCRALFIN (SUCRALFATE) (GRANULATE) [Concomitant]
  10. YOVIS (GRANULATE) [Concomitant]
  11. OMEPRAZOLE [Concomitant]

REACTIONS (11)
  - ARTHRALGIA [None]
  - CARDIAC ARREST [None]
  - CONJUNCTIVITIS [None]
  - DILATATION ATRIAL [None]
  - ERYTHEMA MULTIFORME [None]
  - FACE OEDEMA [None]
  - MUCOSAL INFLAMMATION [None]
  - OSTEOPOROSIS [None]
  - STEVENS-JOHNSON SYNDROME [None]
  - STOMATITIS [None]
  - TOXIC EPIDERMAL NECROLYSIS [None]
